FAERS Safety Report 6419260-0 (Version None)
Quarter: 2009Q4

REPORT INFORMATION
  Report Type: 
  Country: None (occurrence: None)
  Receive Date: 20091029
  Receipt Date: 20091016
  Transmission Date: 20100525
  Serious: Yes (Other)
  Sender: FDA-Public Use
  Company Number: PHHY2009BR36510

PATIENT
  Age: 59 Year
  Sex: Female
  Weight: 77 kg

DRUGS (2)
  1. DIOVAN AMLO FIX [Suspect]
     Indication: HYPERTENSION
     Dosage: 320/5MG TABLET DAILY
     Route: 048
     Dates: start: 20090813
  2. CLORANA [Concomitant]
     Indication: HYPERTENSION
     Dosage: 50 MG, QD
     Route: 048

REACTIONS (3)
  - BLOOD PRESSURE INCREASED [None]
  - COUGH [None]
  - HEADACHE [None]
